FAERS Safety Report 14839972 (Version 1)
Quarter: 2018Q2

REPORT INFORMATION
  Report Type: Spontaneous
  Country: US (occurrence: US)
  Receive Date: 20180503
  Receipt Date: 20180503
  Transmission Date: 20180711
  Serious: No
  Sender: FDA-Public Use
  Company Number: US-ASTRAZENECA-2018SE44142

PATIENT
  Sex: Male

DRUGS (1)
  1. BRILINTA [Suspect]
     Active Substance: TICAGRELOR
     Indication: MYOCARDIAL INFARCTION
     Dosage: 90.0MG UNKNOWN
     Route: 048

REACTIONS (7)
  - Tension [Unknown]
  - Product use issue [Unknown]
  - Stress [Unknown]
  - Off label use [Unknown]
  - Nasopharyngitis [Unknown]
  - Panic disorder [Unknown]
  - Blood cholesterol abnormal [Unknown]
